FAERS Safety Report 8592561-6 (Version None)
Quarter: 2012Q3

REPORT INFORMATION
  Report Type: 
  Country: None (occurrence: None)
  Receive Date: 20120814
  Receipt Date: 20120810
  Transmission Date: 20120928
  Serious: No
  Sender: FDA-Public Use
  Company Number: US-009507513-1207USA002625

PATIENT

DRUGS (3)
  1. JANUMET [Suspect]
     Indication: DIABETES MELLITUS
     Dosage: 1 TABLET DAILY
     Route: 048
     Dates: start: 20080101
  2. DIOVAN [Concomitant]
  3. VITAMINS (UNSPECIFIED) [Concomitant]

REACTIONS (5)
  - EYE PRURITUS [None]
  - RASH [None]
  - DRUG HYPERSENSITIVITY [None]
  - OROPHARYNGEAL DISCOMFORT [None]
  - INCORRECT DOSE ADMINISTERED [None]
